FAERS Safety Report 7958476-9 (Version None)
Quarter: 2011Q4

REPORT INFORMATION
  Report Type: 
  Country: None (occurrence: None)
  Receive Date: 20111205
  Receipt Date: 20111129
  Transmission Date: 20120403
  Serious: Yes (Hospitalization)
  Sender: FDA-Public Use
  Company Number: US-BRISTOL-MYERS SQUIBB COMPANY-16153322

PATIENT
  Age: 54 Year
  Sex: Female

DRUGS (5)
  1. ONGLYZA [Suspect]
     Indication: TYPE 2 DIABETES MELLITUS
     Route: 048
     Dates: start: 20110801, end: 20110907
  2. METFORMIN HCL [Concomitant]
  3. PRAVASTATIN SODIUM [Concomitant]
  4. IRON [Concomitant]
  5. NORVASC [Concomitant]

REACTIONS (1)
  - PANCREATITIS [None]
